FAERS Safety Report 5147747-X (Version None)
Quarter: 2006Q4

REPORT INFORMATION
  Report Type: 
  Country: None (occurrence: None)
  Receive Date: 20061106
  Receipt Date: 20061025
  Transmission Date: 20070319
  Serious: Yes (Death)
  Sender: FDA-Public Use
  Company Number: 2006024824

PATIENT
  Age: 54 Year
  Sex: Male

DRUGS (1)
  1. SERTRALINE [Suspect]
     Indication: ILL-DEFINED DISORDER
     Dosage: (200 MG)

REACTIONS (7)
  - ACCIDENT [None]
  - BLOOD ALKALINE PHOSPHATASE INCREASED [None]
  - COGNITIVE DISORDER [None]
  - DRUG LEVEL INCREASED [None]
  - FALL [None]
  - INJURY [None]
  - OVERDOSE [None]
